FAERS Safety Report 20850132 (Version 2)
Quarter: 2022Q3

REPORT INFORMATION
  Report Type: Spontaneous
  Country: US (occurrence: US)
  Receive Date: 20220519
  Receipt Date: 20220724
  Transmission Date: 20221026
  Serious: No
  Sender: FDA-Public Use
  Company Number: US-ALXN-A202205889

PATIENT
  Sex: Female

DRUGS (1)
  1. SOLIRIS [Suspect]
     Active Substance: ECULIZUMAB
     Indication: Paroxysmal nocturnal haemoglobinuria
     Dosage: 1200 MG , Q2W
     Route: 042
     Dates: start: 201008

REACTIONS (6)
  - Vascular injury [Unknown]
  - Feeling abnormal [Unknown]
  - Off label use [Unknown]
  - Haematoma [Not Recovered/Not Resolved]
  - Depression [Unknown]
  - Anxiety [Unknown]
